FAERS Safety Report 25938649 (Version 1)
Quarter: 2025Q4

REPORT INFORMATION
  Report Type: Spontaneous
  Country: GB (occurrence: GB)
  Receive Date: 20251019
  Receipt Date: 20251019
  Transmission Date: 20260118
  Serious: Yes (Hospitalization, Other)
  Sender: CELLTRION
  Company Number: GB-CELLTRION INC.-2025GB037490

PATIENT

DRUGS (2)
  1. YUFLYMA [Suspect]
     Active Substance: ADALIMUMAB-AATY
     Indication: Psoriatic arthropathy
     Dosage: UNK
  2. YUFLYMA [Suspect]
     Active Substance: ADALIMUMAB-AATY
     Dosage: SUCCESSFULLY ADMINISTERED HER NEXT DOSE ON 05/10/2025
     Dates: start: 20251005

REACTIONS (3)
  - Dementia Alzheimer^s type [Unknown]
  - Dyspnoea [Unknown]
  - Intentional dose omission [Unknown]
